FAERS Safety Report 7535601-5 (Version None)
Quarter: 2011Q2

REPORT INFORMATION
  Report Type: 
  Country: None (occurrence: None)
  Receive Date: 20110601
  Receipt Date: 20110525
  Transmission Date: 20111010
  Serious: Yes (Hospitalization)
  Sender: FDA-Public Use
  Company Number: 2011SP013052

PATIENT
  Age: 68 Year
  Sex: Female

DRUGS (12)
  1. REMERON [Suspect]
     Indication: BIPOLAR I DISORDER
     Dosage: 15 MG;QD;PO, 30 MG;QD;PO
     Route: 048
     Dates: start: 20101209, end: 20101225
  2. REMERON [Suspect]
     Indication: BIPOLAR I DISORDER
     Dosage: 15 MG;QD;PO, 30 MG;QD;PO
     Route: 048
     Dates: start: 20101125, end: 20101208
  3. ZOPICLONE [Concomitant]
  4. ZYPREXA [Suspect]
     Indication: BIPOLAR I DISORDER
     Dosage: 1.25 MG;PO
     Route: 048
     Dates: start: 20070908
  5. SULPIRIDE (SULPIRIDE) [Suspect]
     Indication: BIPOLAR I DISORDER
     Dosage: 50 MG; PO
     Route: 048
     Dates: start: 20101125, end: 20101224
  6. MAGNESIUM SULFATE [Concomitant]
  7. SEROQUEL (QUETIAPINE) [Suspect]
     Indication: BIPOLAR I DISORDER
     Dosage: 50 MG;PO
     Route: 048
     Dates: start: 20101209, end: 20101224
  8. LORAZEPAM [Concomitant]
  9. BI SIFROL (PRAMIPEXOLE HYDROCHLORIDE HYDRATE) [Concomitant]
  10. NITRAZEPAM [Concomitant]
  11. PARULEON (TRIAZOLAM) [Suspect]
     Indication: BIPOLAR I DISORDER
     Dosage: 0.25 MG; PO
     Route: 048
     Dates: start: 20101209, end: 20101224
  12. LITIOMAL [Concomitant]

REACTIONS (7)
  - CONSTIPATION [None]
  - INSOMNIA [None]
  - DEPRESSION [None]
  - CONDITION AGGRAVATED [None]
  - DECREASED APPETITE [None]
  - FLUID INTAKE REDUCED [None]
  - FAECAL INCONTINENCE [None]
